FAERS Safety Report 8895419 (Version 1)
Quarter: 2012Q4

REPORT INFORMATION
  Report Type: 
  Country: US (occurrence: US)
  Receive Date: 20121108
  Receipt Date: 20121108
  Transmission Date: 20130627
  Serious: Yes (Death, Other)
  Sender: FDA-Public Use
  Company Number: US-SANOFI-AVENTIS-2012SA079872

PATIENT
  Age: 79 Year
  Sex: Male

DRUGS (6)
  1. ASPIRIN [Suspect]
     Indication: CORONARY ARTERY DISEASE
     Route: 065
  2. CLOPIDOGREL BISULFATE [Suspect]
     Indication: CORONARY ARTERY DISEASE
     Route: 065
  3. DESMOPRESSIN ACETATE [Suspect]
     Indication: EPISTAXIS
     Route: 065
  4. DESMOPRESSIN ACETATE [Suspect]
     Indication: MELENA
     Route: 065
  5. DABIGATRAN [Suspect]
     Indication: ATRIAL FIBRILLATION
     Route: 065
  6. DABIGATRAN [Suspect]
     Indication: CORONARY ARTERY DISEASE
     Route: 065

REACTIONS (6)
  - Melaena [Not Recovered/Not Resolved]
  - Epistaxis [Not Recovered/Not Resolved]
  - Cardiac arrest [Fatal]
  - Pulseless electrical activity [Recovered/Resolved]
  - Blood pressure decreased [Unknown]
  - Off label use [Unknown]
